FAERS Safety Report 5015303-X (Version None)
Quarter: 2006Q2

REPORT INFORMATION
  Report Type: 
  Country: None (occurrence: None)
  Receive Date: 20060601
  Receipt Date: 20060206
  Transmission Date: 20061013
  Serious: Yes (Other)
  Sender: FDA-Public Use
  Company Number: PHBS2006BR02190

PATIENT
  Age: 33 Year
  Sex: Female
  Weight: 51 kg

DRUGS (2)
  1. CODATEN [Suspect]
     Indication: NECK PAIN
     Dosage: 1 TAB/DAY
     Route: 048
  2. ALLEGRA [Concomitant]
     Dosage: UNK, QD

REACTIONS (10)
  - ABDOMINAL PAIN UPPER [None]
  - ANAPHYLACTIC SHOCK [None]
  - BLOOD PRESSURE DECREASED [None]
  - DIFFICULTY IN WALKING [None]
  - DRUG HYPERSENSITIVITY [None]
  - DYSPEPSIA [None]
  - GASTRITIS [None]
  - NAUSEA [None]
  - PURULENT DISCHARGE [None]
  - VOMITING [None]
